FAERS Safety Report 8274960-5 (Version None)
Quarter: 2012Q2

REPORT INFORMATION
  Report Type: 
  Country: None (occurrence: None)
  Receive Date: 20120411
  Receipt Date: 20120403
  Transmission Date: 20120825
  Serious: Yes (Hospitalization)
  Sender: FDA-Public Use
  Company Number: US-ELI_LILLY_AND_COMPANY-US201204001653

PATIENT
  Sex: Male

DRUGS (1)
  1. HUMULIN R [Suspect]
     Indication: TYPE 2 DIABETES MELLITUS
     Dosage: 40 U, PRN

REACTIONS (5)
  - HYPERTENSION [None]
  - INCORRECT DOSE ADMINISTERED [None]
  - HOSPITALISATION [None]
  - HAEMATURIA [None]
  - EMOTIONAL DISTRESS [None]
